FAERS Safety Report 6862680-0 (Version None)
Quarter: 2010Q3

REPORT INFORMATION
  Report Type: 
  Country: None (occurrence: None)
  Receive Date: 20100721
  Receipt Date: 20100709
  Transmission Date: 20110219
  Serious: Yes (Hospitalization)
  Sender: FDA-Public Use
  Company Number: JP-ROCHE-575919

PATIENT
  Sex: Male
  Weight: 19 kg

DRUGS (26)
  1. ACTEMRA [Suspect]
     Indication: JUVENILE ARTHRITIS
     Route: 041
     Dates: start: 20080523, end: 20080523
  2. ACTEMRA [Suspect]
     Route: 041
     Dates: start: 20080609, end: 20090216
  3. ACTEMRA [Suspect]
     Route: 041
     Dates: start: 20090309
  4. PREDNISOLONE [Concomitant]
     Dosage: DOSE FORM: PERORAL AGENT
     Route: 048
     Dates: end: 20080529
  5. PREDNISOLONE [Concomitant]
     Route: 048
     Dates: start: 20080606, end: 20080623
  6. PREDNISOLONE [Concomitant]
     Route: 048
     Dates: start: 20080624, end: 20080710
  7. PREDNISOLONE [Concomitant]
     Route: 048
     Dates: start: 20080711, end: 20080724
  8. PREDNISOLONE [Concomitant]
     Route: 048
     Dates: start: 20080725, end: 20080812
  9. PREDNISOLONE [Concomitant]
     Route: 048
     Dates: start: 20080813, end: 20080828
  10. PREDNISOLONE [Concomitant]
     Route: 048
     Dates: start: 20080829, end: 20081021
  11. PREDNISOLONE [Concomitant]
     Route: 048
     Dates: start: 20081022, end: 20081118
  12. PREDNISOLONE [Concomitant]
     Route: 048
     Dates: start: 20081119, end: 20081205
  13. PREDNISOLONE [Concomitant]
     Route: 048
     Dates: start: 20081206, end: 20090202
  14. PREDNISOLONE [Concomitant]
     Route: 048
     Dates: start: 20090203
  15. PREDNISOLONE [Concomitant]
     Dosage: FORM: TABLET
     Route: 048
     Dates: end: 20100221
  16. PREDNISOLONE [Concomitant]
     Dosage: FORM: TABLET
     Route: 048
     Dates: start: 20100302
  17. DEXAMETHASONE PALMITATE [Concomitant]
     Dosage: DRUG NAME: LIMETHASONE
     Route: 042
     Dates: start: 20080530, end: 20080603
  18. DEXAMETHASONE PALMITATE [Concomitant]
     Route: 042
     Dates: start: 20100223, end: 20100226
  19. DEXAMETHASONE PALMITATE [Concomitant]
     Route: 042
     Dates: start: 20100227, end: 20100301
  20. GASTER [Concomitant]
     Dosage: FORMULATION: ORAL FORMULATION (NOT OTHERWISE SPECIFIED)
     Route: 048
  21. ULCERLMIN [Concomitant]
     Route: 048
  22. BONALON [Concomitant]
     Route: 048
  23. CEFTRIAXONE SODIUM [Concomitant]
     Dosage: DRUG NAME: CERONEED
     Route: 042
     Dates: start: 20080530, end: 20080603
  24. METHYLPREDNISOLONE SODIUM SUCCINATE [Concomitant]
     Route: 042
     Dates: start: 20080530, end: 20080530
  25. METHYLPREDNISOLONE SODIUM SUCCINATE [Concomitant]
     Route: 042
     Dates: start: 20080604, end: 20080605
  26. METHYLPREDNISOLONE SODIUM SUCCINATE [Concomitant]
     Route: 042
     Dates: start: 20100222, end: 20100222

REACTIONS (4)
  - GASTROENTERITIS [None]
  - HERPES SIMPLEX [None]
  - JUVENILE ARTHRITIS [None]
  - LYMPHADENITIS [None]
